FAERS Safety Report 12915877 (Version 1)
Quarter: 2016Q4

REPORT INFORMATION
  Report Type: Spontaneous
  Country: US (occurrence: US)
  Receive Date: 20161107
  Receipt Date: 20161107
  Transmission Date: 20170207
  Serious: No
  Sender: FDA-Public Use
  Company Number: US-ACCORD-035306

PATIENT
  Age: 49 Year
  Sex: Male
  Weight: 81.82 kg

DRUGS (1)
  1. ESCITALOPRAM ACCORD [Suspect]
     Active Substance: ESCITALOPRAM OXALATE
     Indication: DEPRESSION
     Dosage: STRENGTH: 10 MG.?30 TABLETS
     Route: 048
     Dates: start: 201509

REACTIONS (3)
  - Drug ineffective [Not Recovered/Not Resolved]
  - Withdrawal syndrome [Unknown]
  - Product substitution issue [Unknown]

NARRATIVE: CASE EVENT DATE: 201510
